FAERS Safety Report 14374136 (Version 1)
Quarter: 2018Q1

REPORT INFORMATION
  Report Type: Report from Study
  Country: US (occurrence: US)
  Receive Date: 20180111
  Receipt Date: 20180111
  Transmission Date: 20180509
  Serious: No
  Sender: FDA-Public Use
  Company Number: US-AMGEN-USASL2018002708

PATIENT
  Sex: Female

DRUGS (1)
  1. ENBREL [Suspect]
     Active Substance: ETANERCEPT
     Indication: RHEUMATOID ARTHRITIS
     Dosage: UNK UNK, QWK
     Route: 065
     Dates: end: 201701

REACTIONS (8)
  - Injection site hypoaesthesia [Unknown]
  - Injection site discolouration [Unknown]
  - Nasopharyngitis [Unknown]
  - Memory impairment [Unknown]
  - Injection site pain [Unknown]
  - Malaise [Unknown]
  - Wrong technique in product usage process [Unknown]
  - Injection site mass [Unknown]
